FAERS Safety Report 23811634 (Version 1)
Quarter: 2024Q2

REPORT INFORMATION
  Report Type: Spontaneous
  Country: CA (occurrence: CA)
  Receive Date: 20240503
  Receipt Date: 20240503
  Transmission Date: 20240715
  Serious: Yes (Hospitalization, Other)
  Sender: FDA-Public Use
  Company Number: CA-TEVA-VS-3192128

PATIENT

DRUGS (1)
  1. ENALAPRIL [Suspect]
     Active Substance: ENALAPRIL
     Indication: Product used for unknown indication
     Route: 048

REACTIONS (3)
  - Toxicity to various agents [Recovering/Resolving]
  - Hypotension [Recovering/Resolving]
  - Hypoxia [Recovering/Resolving]
